FAERS Safety Report 26165649 (Version 1)
Quarter: 2025Q4

REPORT INFORMATION
  Report Type: Spontaneous
  Country: EU (occurrence: EU)
  Receive Date: 20251216
  Receipt Date: 20251216
  Transmission Date: 20260117
  Serious: Yes (Hospitalization)
  Sender: MYLAN
  Company Number: None

PATIENT
  Age: 58 Year
  Sex: Female
  Weight: 58.5 kg

DRUGS (12)
  1. ACETAMINOPHEN [Suspect]
     Active Substance: ACETAMINOPHEN
     Indication: Poisoning deliberate
     Dosage: 16 GRAM
     Route: 061
     Dates: start: 20251105, end: 20251105
  2. ACETAMINOPHEN [Suspect]
     Active Substance: ACETAMINOPHEN
     Dosage: 16 GRAM
     Route: 048
     Dates: start: 20251105, end: 20251105
  3. ACETAMINOPHEN [Suspect]
     Active Substance: ACETAMINOPHEN
     Dosage: 16 GRAM
     Route: 048
     Dates: start: 20251105, end: 20251105
  4. ACETAMINOPHEN [Suspect]
     Active Substance: ACETAMINOPHEN
     Dosage: 16 GRAM
     Route: 061
     Dates: start: 20251105, end: 20251105
  5. MIANSERIN [Suspect]
     Active Substance: MIANSERIN
     Indication: Poisoning deliberate
     Dosage: 450 MILLIGRAM
     Route: 061
     Dates: start: 20251105, end: 20251105
  6. MIANSERIN [Suspect]
     Active Substance: MIANSERIN
     Dosage: 450 MILLIGRAM
     Route: 048
     Dates: start: 20251105, end: 20251105
  7. MIANSERIN [Suspect]
     Active Substance: MIANSERIN
     Dosage: 450 MILLIGRAM
     Route: 048
     Dates: start: 20251105, end: 20251105
  8. MIANSERIN [Suspect]
     Active Substance: MIANSERIN
     Dosage: 450 MILLIGRAM
     Route: 061
     Dates: start: 20251105, end: 20251105
  9. BROMAZEPAM [Suspect]
     Active Substance: BROMAZEPAM
     Indication: Poisoning deliberate
     Dosage: 90 MILLIGRAM
     Route: 061
     Dates: start: 20251105, end: 20251105
  10. BROMAZEPAM [Suspect]
     Active Substance: BROMAZEPAM
     Dosage: 90 MILLIGRAM
     Route: 048
     Dates: start: 20251105, end: 20251105
  11. BROMAZEPAM [Suspect]
     Active Substance: BROMAZEPAM
     Dosage: 90 MILLIGRAM
     Route: 048
     Dates: start: 20251105, end: 20251105
  12. BROMAZEPAM [Suspect]
     Active Substance: BROMAZEPAM
     Dosage: 90 MILLIGRAM
     Route: 061
     Dates: start: 20251105, end: 20251105

REACTIONS (3)
  - Coma [Recovered/Resolved]
  - Prothrombin time shortened [Recovered/Resolved]
  - Poisoning deliberate [Recovered/Resolved]

NARRATIVE: CASE EVENT DATE: 20251105
